FAERS Safety Report 23050934 (Version 1)
Quarter: 2023Q4

REPORT INFORMATION
  Report Type: Spontaneous
  Country: ES (occurrence: ES)
  Receive Date: 20231010
  Receipt Date: 20231010
  Transmission Date: 20240110
  Serious: Yes (Death, Other)
  Sender: FDA-Public Use
  Company Number: ES-AMGEN-ESPSP2023178285

PATIENT
  Age: 39 Year
  Sex: Male

DRUGS (8)
  1. BEVACIZUMAB [Suspect]
     Active Substance: BEVACIZUMAB
     Indication: Anal cancer
     Dosage: 5 MILLIGRAM/KG, Q2WK
     Route: 065
  2. BEVACIZUMAB [Suspect]
     Active Substance: BEVACIZUMAB
     Dosage: 5 MILLIGRAM/KG, Q2WK
     Route: 065
  3. FLUOROURACIL [Concomitant]
     Active Substance: FLUOROURACIL
     Dosage: 2400 MILLIGRAM/M^2
     Route: 065
  4. LEUCOVORIN [Concomitant]
     Active Substance: LEUCOVORIN\LEUCOVORIN CALCIUM
     Dosage: 400 MILLIGRAM/M^2
     Route: 065
  5. IRINOTECAN [Concomitant]
     Active Substance: IRINOTECAN
     Dosage: 180 MILLIGRAM/M^2
     Route: 065
  6. CAPECITABINE [Concomitant]
     Active Substance: CAPECITABINE
     Dosage: 850 MILLIGRAM/M^2 BID
  7. CAPECITABINE [Concomitant]
     Active Substance: CAPECITABINE
     Dosage: 850 MILLIGRAM/M^2 BID
  8. CETUXIMAB [Concomitant]
     Active Substance: CETUXIMAB
     Dosage: 500 MILLIGRAM, Q4WK (ON DAYS 1 AND 15; EVERY 28 DAYS)
     Route: 065

REACTIONS (4)
  - Death [Fatal]
  - Anal cancer [Unknown]
  - Therapy partial responder [Unknown]
  - Off label use [Unknown]
